FAERS Safety Report 8505960-5 (Version None)
Quarter: 2012Q3

REPORT INFORMATION
  Report Type: 
  Country: None (occurrence: None)
  Receive Date: 20120712
  Receipt Date: 20120702
  Transmission Date: 20120928
  Serious: Yes (Hospitalization)
  Sender: FDA-Public Use
  Company Number: US-GLAXOSMITHKLINE-A0983037A

PATIENT
  Age: 49 Year
  Sex: Female

DRUGS (5)
  1. VALIUM [Concomitant]
  2. LORTAB [Concomitant]
  3. IMITREX [Suspect]
     Indication: MIGRAINE
     Dosage: 100MG AS REQUIRED
     Route: 048
     Dates: start: 20070101, end: 20111201
  4. IMITREX [Suspect]
     Route: 065
  5. MOTRIN [Concomitant]

REACTIONS (12)
  - CARDIAC ARREST [None]
  - THYROID FUNCTION TEST ABNORMAL [None]
  - MENOPAUSE [None]
  - DRUG INEFFECTIVE [None]
  - VOMITING [None]
  - MENORRHAGIA [None]
  - PUPILLARY DISORDER [None]
  - BASEDOW'S DISEASE [None]
  - MALAISE [None]
  - HYPERTHYROIDISM [None]
  - HYPERTENSION [None]
  - WEIGHT DECREASED [None]
